FAERS Safety Report 7746965-1 (Version None)
Quarter: 2011Q3

REPORT INFORMATION
  Report Type: 
  Country: None (occurrence: None)
  Receive Date: 20110913
  Receipt Date: 20110905
  Transmission Date: 20111222
  Serious: Yes (Other)
  Sender: FDA-Public Use
  Company Number: PHFR2011GB04888

PATIENT
  Sex: Male

DRUGS (10)
  1. EXELON [Suspect]
     Indication: DEMENTIA ALZHEIMER'S TYPE
     Dosage: 4.5 MG, UNK
     Route: 062
  2. EXELON [Suspect]
     Dosage: 9.5 MG PER DAY
     Route: 062
     Dates: start: 20110506, end: 20110729
  3. LODINE [Concomitant]
     Indication: ARTHRITIS
     Dosage: 600 MG, QD
     Route: 048
  4. CLONAZEPAM [Concomitant]
     Indication: MYOCLONUS
     Dosage: 500 UG, QD
     Route: 048
  5. TAMSULOSIN HCL [Concomitant]
     Indication: BENIGN PROSTATIC HYPERPLASIA
     Dosage: 400 UG, QD
     Route: 048
  6. THICK N EASY [Concomitant]
     Indication: DYSPHAGIA
     Dosage: UNK UKN, UNK
  7. VENLAFAXINE HYDROCHLORIDE [Concomitant]
     Indication: ANXIETY
     Dosage: 75 MG, QD
     Route: 048
  8. PRAVASTATIN [Concomitant]
     Indication: BLOOD CHOLESTEROL INCREASED
     Dosage: 40 MG/NOCTE
     Route: 048
  9. FINASTERIDE [Concomitant]
     Indication: BENIGN PROSTATIC HYPERPLASIA
     Dosage: 5 MG, QD
     Route: 048
  10. VENLAFAXINE HYDROCHLORIDE [Concomitant]
     Indication: DEPRESSION

REACTIONS (3)
  - APPLICATION SITE RASH [None]
  - MENTAL IMPAIRMENT [None]
  - APPLICATION SITE VESICLES [None]
